FAERS Safety Report 4565636-6 (Version None)
Quarter: 2005Q1

REPORT INFORMATION
  Report Type: 
  Country: None (occurrence: None)
  Receive Date: 20050125
  Receipt Date: 20050125
  Transmission Date: 20050727
  Serious: No
  Sender: FDA-Public Use
  Company Number: None

PATIENT
  Age: 46 Year
  Sex: Male
  Weight: 75.2971 kg

DRUGS (3)
  1. CYCLOBENZAPRINE HCL [Suspect]
     Indication: MYOFASCIAL PAIN SYNDROME
     Dosage: SEE IMAGE
     Route: 048
     Dates: start: 20041025, end: 20041027
  2. . [Concomitant]
  3. PREDNISONE [Concomitant]

REACTIONS (9)
  - BURNING SENSATION [None]
  - DRY SKIN [None]
  - ERYTHEMA [None]
  - GRIP STRENGTH DECREASED [None]
  - HYPERAESTHESIA [None]
  - INDURATION [None]
  - MUSCLE CONTRACTURE [None]
  - MUSCULOSKELETAL STIFFNESS [None]
  - RASH SCALY [None]
